FAERS Safety Report 5111175-3 (Version None)
Quarter: 2006Q3

REPORT INFORMATION
  Report Type: 
  Country: None (occurrence: None)
  Receive Date: 20060922
  Receipt Date: 20060911
  Transmission Date: 20061208
  Serious: Yes (Other)
  Sender: FDA-Public Use
  Company Number: BR-JNJFOC-20060902861

PATIENT
  Age: 20 Month
  Sex: Male
  Weight: 17 kg

DRUGS (1)
  1. MICRONOR [Suspect]
     Indication: ACCIDENTAL DRUG INTAKE BY CHILD

REACTIONS (1)
  - ACCIDENTAL DRUG INTAKE BY CHILD [None]
